FAERS Safety Report 6062296-2 (Version None)
Quarter: 2009Q1

REPORT INFORMATION
  Report Type: 
  Country: None (occurrence: None)
  Receive Date: 20090202
  Receipt Date: 20090202
  Transmission Date: 20090719
  Serious: Yes (Hospitalization)
  Sender: FDA-Public Use
  Company Number: None

PATIENT
  Age: 35 Year
  Sex: Female
  Weight: 107.9561 kg

DRUGS (3)
  1. CARBOPLATIN [Suspect]
     Indication: BREAST CANCER
     Dosage: 312MG WEEKLY IV
     Route: 042
     Dates: end: 20081125
  2. ABRAXANE [Suspect]
     Indication: BREAST CANCER
     Dosage: 100MG WEEKLY IV
     Route: 042
     Dates: end: 20081125
  3. DEXAMETHASONE [Concomitant]

REACTIONS (4)
  - DEPRESSION [None]
  - EMOTIONAL DISTRESS [None]
  - FAMILY STRESS [None]
  - SUICIDAL IDEATION [None]
